FAERS Safety Report 6441681-0 (Version None)
Quarter: 2009Q4

REPORT INFORMATION
  Report Type: 
  Country: None (occurrence: None)
  Receive Date: 20091116
  Receipt Date: 20091016
  Transmission Date: 20100525
  Serious: No
  Sender: FDA-Public Use
  Company Number: US-BAYER-200915777BCC

PATIENT
  Sex: Female

DRUGS (4)
  1. ALEVE (CAPLET) [Suspect]
     Indication: ARTHRALGIA
     Dosage: TOTAL DAILY DOSE: 440 MG  UNIT DOSE: 220 MG
     Route: 048
     Dates: start: 20090101
  2. LIPITOR [Concomitant]
     Route: 065
  3. ACTOS [Concomitant]
     Route: 065
  4. AMEROL [Concomitant]
     Route: 065

REACTIONS (2)
  - DIZZINESS [None]
  - NAUSEA [None]
